FAERS Safety Report 19610352 (Version 3)
Quarter: 2021Q3

REPORT INFORMATION
  Report Type: Report from Study
  Country: US (occurrence: US)
  Receive Date: 20210726
  Receipt Date: 20210920
  Transmission Date: 20211014
  Serious: Yes (Hospitalization, Other)
  Sender: FDA-Public Use
  Company Number: NVSC2021US164604

PATIENT
  Sex: Female

DRUGS (2)
  1. IMODIUM [Concomitant]
     Active Substance: LOPERAMIDE HYDROCHLORIDE
     Indication: PRODUCT USED FOR UNKNOWN INDICATION
     Dosage: UNK
     Route: 065
  2. PIQRAY [Suspect]
     Active Substance: ALPELISIB
     Indication: BREAST CANCER
     Dosage: 300 MG, QD
     Route: 048
     Dates: start: 202107

REACTIONS (7)
  - Hypersensitivity [Unknown]
  - Hyperglycaemia [Unknown]
  - Abdominal pain upper [Recovering/Resolving]
  - Eye pruritus [Unknown]
  - Diarrhoea [Unknown]
  - Pruritus [Unknown]
  - Dry skin [Unknown]
